FAERS Safety Report 8254377-X (Version None)
Quarter: 2012Q2

REPORT INFORMATION
  Report Type: 
  Country: None (occurrence: None)
  Receive Date: 20120402
  Receipt Date: 20120323
  Transmission Date: 20120825
  Serious: No
  Sender: FDA-Public Use
  Company Number: US-AMGEN-USASP2012018963

PATIENT
  Sex: Female

DRUGS (5)
  1. ENBREL [Suspect]
     Indication: PSORIATIC ARTHROPATHY
     Dosage: 50 MG, QWK
     Dates: start: 20080101
  2. LEVOTHYROXINE SODIUM [Concomitant]
  3. ENBREL [Suspect]
     Indication: RHEUMATOID ARTHRITIS
  4. PREDNISONE TAB [Concomitant]
  5. LEXAPRO [Concomitant]

REACTIONS (4)
  - INFLUENZA [None]
  - PAIN [None]
  - RHEUMATOID ARTHRITIS [None]
  - DRUG EFFECT DECREASED [None]
